FAERS Safety Report 4977639-8 (Version None)
Quarter: 2006Q2

REPORT INFORMATION
  Report Type: 
  Country: None (occurrence: None)
  Receive Date: 20060420
  Receipt Date: 20050928
  Transmission Date: 20061013
  Serious: No
  Sender: FDA-Public Use
  Company Number: US-GLAXOSMITHKLINE-A0576228A

PATIENT
  Sex: Male

DRUGS (3)
  1. ESKALITH [Suspect]
     Indication: DRUG USE FOR UNKNOWN INDICATION
     Dosage: 300MG TWICE PER DAY
     Route: 048
  2. ATENOLOL [Suspect]
  3. ZYLOPRIM [Concomitant]

REACTIONS (1)
  - ANTIPSYCHOTIC DRUG LEVEL BELOW THERAPEUTIC [None]
